FAERS Safety Report 20364042 (Version 1)
Quarter: 2022Q1

REPORT INFORMATION
  Report Type: Spontaneous
  Country: FI (occurrence: FI)
  Receive Date: 20220121
  Receipt Date: 20220121
  Transmission Date: 20220423
  Serious: Yes (Hospitalization, Other)
  Sender: FDA-Public Use
  Company Number: FI-ELI_LILLY_AND_COMPANY-FI202201003440

PATIENT
  Sex: Female

DRUGS (1)
  1. EMGALITY [Suspect]
     Active Substance: GALCANEZUMAB-GNLM
     Indication: Migraine
     Dosage: 120 MG, UNKNOWN
     Route: 065
     Dates: start: 202101, end: 202104

REACTIONS (4)
  - Duodenal ulcer perforation [Unknown]
  - Abscess [Unknown]
  - Sepsis [Unknown]
  - Anxiety [Unknown]

NARRATIVE: CASE EVENT DATE: 20210420
